FAERS Safety Report 9268388 (Version 1)
Quarter: 2013Q2

REPORT INFORMATION
  Report Type: Spontaneous
  Country: US (occurrence: US)
  Receive Date: 20130502
  Receipt Date: 20130502
  Transmission Date: 20140414
  Serious: No
  Sender: FDA-Public Use
  Company Number: US-009507513-1305USA000747

PATIENT
  Age: 23 Year
  Sex: Female
  Weight: 57.6 kg

DRUGS (2)
  1. NUVARING [Suspect]
     Indication: CONTRACEPTION
     Dosage: 3 WEEKS IN/ 1 WEEK RING FREE
     Route: 067
     Dates: start: 2009
  2. NUVARING [Suspect]
     Indication: MENSTRUATION IRREGULAR

REACTIONS (1)
  - Laryngitis [Not Recovered/Not Resolved]
